FAERS Safety Report 5060009-4 (Version None)
Quarter: 2006Q3

REPORT INFORMATION
  Report Type: 
  Country: None (occurrence: None)
  Receive Date: 20060719
  Receipt Date: 19990820
  Transmission Date: 20061208
  Serious: Yes (Other)
  Sender: FDA-Public Use
  Company Number: 1999-08-0590

PATIENT
  Age: 27 Year
  Sex: Male
  Weight: 70 kg

DRUGS (4)
  1. CELESTAMINE TAB [Suspect]
     Indication: URTICARIA
     Dosage: 3 TAB QD ORAL
     Route: 048
     Dates: start: 19950802, end: 19951208
  2. DEXCHLORPHENIRAMINE MALEATE [Suspect]
     Indication: URTICARIA
     Dosage: 3 TABS QD ORAL
     Route: 048
     Dates: start: 19951201, end: 19951208
  3. ZYRTEC [Concomitant]
  4. HYPOSTAMINE [Concomitant]

REACTIONS (6)
  - ASTHENIA [None]
  - CHROMATURIA [None]
  - CYTOLYTIC HEPATITIS [None]
  - HEPATIC FIBROSIS [None]
  - JAUNDICE [None]
  - SELF-MEDICATION [None]
